FAERS Safety Report 4583586-6 (Version None)
Quarter: 2005Q1

REPORT INFORMATION
  Report Type: 
  Country: None (occurrence: None)
  Receive Date: 20050211
  Receipt Date: 20050126
  Transmission Date: 20050727
  Serious: Yes (Hospitalization)
  Sender: FDA-Public Use
  Company Number: DSA_25713_2005

PATIENT
  Age: 88 Year
  Sex: Female

DRUGS (4)
  1. MONO-TILDIEM - SLOW RELEASE [Suspect]
     Dosage: 1 CAP QD PO
     Route: 048
     Dates: start: 20041223
  2. DIGOXIN [Concomitant]
  3. TRIATEC [Concomitant]
  4. HYPERIUM [Concomitant]

REACTIONS (1)
  - BRADYCARDIA [None]
